FAERS Safety Report 6596775-6 (Version None)
Quarter: 2010Q1

REPORT INFORMATION
  Report Type: 
  Country: None (occurrence: None)
  Receive Date: 20100222
  Receipt Date: 20100222
  Transmission Date: 20100710
  Serious: Yes (Disabling)
  Sender: FDA-Public Use
  Company Number: None

PATIENT
  Sex: Female
  Weight: 90.7194 kg

DRUGS (1)
  1. HALODOL [Suspect]
     Indication: SCHIZOPHRENIA
     Dosage: 5 MG 1 AT PM
     Dates: start: 20090801, end: 20090901

REACTIONS (2)
  - INCORRECT ROUTE OF DRUG ADMINISTRATION [None]
  - TARDIVE DYSKINESIA [None]
